FAERS Safety Report 19265595 (Version 2)
Quarter: 2021Q2

REPORT INFORMATION
  Report Type: Spontaneous
  Country: US (occurrence: US)
  Receive Date: 20210517
  Receipt Date: 20210611
  Transmission Date: 20210717
  Serious: Yes (Other)
  Sender: FDA-Public Use
  Company Number: US-ORGANON-O2105USA000993

PATIENT
  Sex: Female

DRUGS (1)
  1. NEXPLANON [Suspect]
     Active Substance: ETONOGESTREL
     Indication: CONTRACEPTION
     Dosage: ONE EVERY THREE YEARS

REACTIONS (6)
  - Ulnar nerve injury [Unknown]
  - Hypoaesthesia [Unknown]
  - Device deployment issue [Recovered/Resolved]
  - Paraesthesia [Unknown]
  - Device issue [Recovered/Resolved]
  - Device dislocation [Recovered/Resolved]
